FAERS Safety Report 16355059 (Version 1)
Quarter: 2019Q2

REPORT INFORMATION
  Report Type: Spontaneous
  Country: AU (occurrence: AU)
  Receive Date: 20190524
  Receipt Date: 20190524
  Transmission Date: 20190711
  Serious: No
  Sender: FDA-Public Use
  Company Number: AU-JAZZ-2019-AU-006707

PATIENT
  Sex: Female

DRUGS (1)
  1. XYREM [Suspect]
     Active Substance: SODIUM OXYBATE
     Indication: CHRONIC FATIGUE SYNDROME
     Dosage: 2.25 G, BID
     Route: 048

REACTIONS (1)
  - Off label use [Unknown]
